FAERS Safety Report 15180473 (Version 3)
Quarter: 2018Q4

REPORT INFORMATION
  Report Type: Spontaneous
  Country: DE (occurrence: DE)
  Receive Date: 20180723
  Receipt Date: 20181112
  Transmission Date: 20190204
  Serious: Yes (Other)
  Sender: FDA-Public Use
  Company Number: PHHY2016DE187084

PATIENT
  Sex: Female
  Weight: 70 kg

DRUGS (6)
  1. TRASTUZUMAB. [Suspect]
     Active Substance: TRASTUZUMAB
     Indication: HER-2 POSITIVE BREAST CANCER
     Dosage: 600 MG, Q3W (LAST DOSE OF DRUG WAS GIVEN PRIOR TO EVENT IMPAIRMENT OF CARDIAC OUTPUT (UNKNOWN DIAGN)
     Route: 058
     Dates: start: 20151102
  2. PREDNISOLON [Concomitant]
     Active Substance: PREDNISOLONE
     Indication: POLYARTHRITIS
     Dosage: 5 MG, UNK
     Route: 048
  3. PLAQUENIL [Concomitant]
     Active Substance: HYDROXYCHLOROQUINE SULFATE
     Indication: POLYARTHRITIS
     Dosage: 200 MG, UNK
     Route: 048
  4. FOLIC ACID. [Concomitant]
     Active Substance: FOLIC ACID
     Indication: POLYARTHRITIS
     Dosage: 5 MG, UNK
     Route: 048
  5. PLEON RA [Concomitant]
     Active Substance: SULFASALAZINE
     Indication: POLYARTHRITIS
     Dosage: 500 MG, UNK
     Route: 048
  6. LETROZOLE. [Suspect]
     Active Substance: LETROZOLE
     Indication: BREAST CANCER
     Dosage: 2.5 MG, UNK
     Route: 048

REACTIONS (3)
  - Cardiomyopathy [Unknown]
  - Dyspnoea exertional [Unknown]
  - Haematotoxicity [Unknown]

NARRATIVE: CASE EVENT DATE: 20160510
